FAERS Safety Report 14261225 (Version 3)
Quarter: 2018Q1

REPORT INFORMATION
  Report Type: Spontaneous
  Country: EC (occurrence: EC)
  Receive Date: 20171207
  Receipt Date: 20180218
  Transmission Date: 20180508
  Serious: Yes (Disabling)
  Sender: FDA-Public Use
  Company Number: EC-ROCHE-2037534

PATIENT
  Sex: Female

DRUGS (2)
  1. BONVIVA [Suspect]
     Active Substance: IBANDRONATE SODIUM
     Dosage: SECOND DOSE
     Route: 042
     Dates: start: 20171205
  2. BONVIVA [Suspect]
     Active Substance: IBANDRONATE SODIUM
     Indication: OSTEOPOROSIS
     Route: 042
     Dates: start: 20170908

REACTIONS (5)
  - Bone pain [Not Recovered/Not Resolved]
  - Musculoskeletal pain [Not Recovered/Not Resolved]
  - Immobile [Not Recovered/Not Resolved]
  - Tachycardia [Not Recovered/Not Resolved]
  - Headache [Unknown]

NARRATIVE: CASE EVENT DATE: 20170908
